FAERS Safety Report 6369901-1 (Version None)
Quarter: 2009Q3

REPORT INFORMATION
  Report Type: 
  Country: None (occurrence: None)
  Receive Date: 20090923
  Receipt Date: 20071016
  Transmission Date: 20100115
  Serious: Yes (Other)
  Sender: FDA-Public Use
  Company Number: US-ASTRAZENECA-2006UW11066

PATIENT
  Sex: Male
  Weight: 72.6 kg

DRUGS (11)
  1. SEROQUEL [Suspect]
     Indication: SCHIZOPHRENIA
     Dosage: 200 MG-50 MG
     Route: 048
     Dates: start: 20020101, end: 20050101
  2. SEROQUEL [Suspect]
     Dosage: 25 MG - 500 MG
     Route: 048
     Dates: start: 20021206
  3. ZYPREXA [Suspect]
     Dosage: 300 MG-5 MG
     Dates: start: 19990101, end: 20020101
  4. DEPAKOTE [Concomitant]
  5. CHLORPROMAZINE [Concomitant]
  6. GEODON [Concomitant]
  7. DILANTIN [Concomitant]
  8. TRAZODONE [Concomitant]
  9. ACIPHEX [Concomitant]
  10. RISPERDAL [Concomitant]
  11. DIPHENHYDRAMINE HCL [Concomitant]

REACTIONS (1)
  - PANCREATITIS [None]
